FAERS Safety Report 12657915 (Version 1)
Quarter: 2016Q3

REPORT INFORMATION
  Report Type: Spontaneous
  Country: US (occurrence: US)
  Receive Date: 20160816
  Receipt Date: 20160816
  Transmission Date: 20161109
  Serious: Yes (Other)
  Sender: FDA-Public Use
  Company Number: US-TAKEDA-2016TUS014124

PATIENT

DRUGS (2)
  1. BRINTELLIX [Suspect]
     Active Substance: VORTIOXETINE HYDROBROMIDE
     Indication: PRODUCT USED FOR UNKNOWN INDICATION
     Dosage: 5 MG, UNK
     Route: 065
  2. BRINTELLIX [Suspect]
     Active Substance: VORTIOXETINE HYDROBROMIDE
     Dosage: 2.5 MG, UNK
     Route: 065

REACTIONS (8)
  - Suicidal ideation [Recovering/Resolving]
  - Decreased appetite [Recovering/Resolving]
  - Drug dose omission [Recovered/Resolved]
  - Influenza like illness [Recovering/Resolving]
  - Serotonin syndrome [Recovering/Resolving]
  - Depression [Recovering/Resolving]
  - Wrong technique in product usage process [Unknown]
  - Anxiety [Recovering/Resolving]
